FAERS Safety Report 7798766-6 (Version None)
Quarter: 2011Q4

REPORT INFORMATION
  Report Type: 
  Country: None (occurrence: None)
  Receive Date: 20111006
  Receipt Date: 20110928
  Transmission Date: 20120403
  Serious: Yes (Other)
  Sender: FDA-Public Use
  Company Number: PHHY2011DE77969

PATIENT
  Age: 38 Year
  Sex: Female

DRUGS (1)
  1. TOPIRAMATE [Suspect]
     Indication: MIGRAINE
     Dosage: 25 MG, DAILY

REACTIONS (6)
  - CHOROIDAL EFFUSION [None]
  - CHOROIDAL DETACHMENT [None]
  - MYOPIA [None]
  - CHOROIDITIS [None]
  - FLAT ANTERIOR CHAMBER OF EYE [None]
  - BLINDNESS [None]
